FAERS Safety Report 4989893-7 (Version None)
Quarter: 2006Q2

REPORT INFORMATION
  Report Type: 
  Country: None (occurrence: None)
  Receive Date: 20060428
  Receipt Date: 20060418
  Transmission Date: 20061013
  Serious: Yes (Other)
  Sender: FDA-Public Use
  Company Number: 2006053930

PATIENT
  Age: 77 Year
  Sex: Female

DRUGS (2)
  1. XALATAN [Suspect]
     Indication: ILL-DEFINED DISORDER
     Dates: start: 20011101, end: 20060418
  2. DEXAMETHASONE SODIUM PHOSPHATE [Concomitant]

REACTIONS (2)
  - HERPES OPHTHALMIC [None]
  - POST PROCEDURAL COMPLICATION [None]
